FAERS Safety Report 7586257-7 (Version None)
Quarter: 2011Q2

REPORT INFORMATION
  Report Type: 
  Country: None (occurrence: None)
  Receive Date: 20110630
  Receipt Date: 20110630
  Transmission Date: 20111010
  Serious: Yes (Other)
  Sender: FDA-Public Use
  Company Number: None

PATIENT
  Age: 29 Year
  Sex: Male
  Weight: 60.3284 kg

DRUGS (2)
  1. 49 - DERMARASH UNSPECIFIED DR. KANG'S FORMULAS [Suspect]
     Indication: DERMATITIS
     Dosage: TOPICAL QD TOP
     Route: 061
     Dates: start: 20110127, end: 20110620
  2. 49 - DERMARASH UNSPECIFIED DR. KANG'S FORMULAS [Suspect]
     Indication: RASH
     Dosage: TOPICAL QD TOP
     Route: 061
     Dates: start: 20110127, end: 20110620

REACTIONS (3)
  - DERMATITIS ATOPIC [None]
  - CONDITION AGGRAVATED [None]
  - HALO VISION [None]
